FAERS Safety Report 24010191 (Version 4)
Quarter: 2024Q3

REPORT INFORMATION
  Report Type: Spontaneous
  Country: US (occurrence: None)
  Receive Date: 20240625
  Receipt Date: 20240902
  Transmission Date: 20241016
  Serious: No
  Sender: ASTRAZENECA
  Company Number: 2024A144757

PATIENT
  Age: 67 Year
  Sex: Female

DRUGS (9)
  1. TEZSPIRE [Suspect]
     Active Substance: TEZEPELUMAB-EKKO
     Indication: Asthma
     Route: 058
  2. SYMBICORT [Suspect]
     Active Substance: BUDESONIDE\FORMOTEROL FUMARATE DIHYDRATE
     Dosage: UNK,UNK UNKNOWN
     Route: 055
  3. BUDESONIDE [Suspect]
     Active Substance: BUDESONIDE
     Dosage: UNK,UNK UNKNOWN
     Route: 055
  4. REPATHA [Suspect]
     Active Substance: EVOLOCUMAB
  5. PREDNISONE [Suspect]
     Active Substance: PREDNISONE
  6. PULMICORT TURBUHALER [Suspect]
     Active Substance: BUDESONIDE
  7. MONTELUKAST [Concomitant]
     Active Substance: MONTELUKAST SODIUM
  8. BUDESONIDE [Concomitant]
     Active Substance: BUDESONIDE
  9. PULMICORT TURBUHALER [Concomitant]
     Active Substance: BUDESONIDE

REACTIONS (8)
  - Stress [Unknown]
  - Asthma [Recovered/Resolved]
  - Product storage error [Unknown]
  - Drug ineffective [Unknown]
  - Product dose omission issue [Unknown]
  - Wrong technique in device usage process [Unknown]
  - Off label use [Unknown]
  - Device defective [Unknown]
